FAERS Safety Report 9969874 (Version 2)
Quarter: 2014Q2

REPORT INFORMATION
  Report Type: Spontaneous
  Country: US (occurrence: US)
  Receive Date: 20140306
  Receipt Date: 20140505
  Transmission Date: 20141212
  Serious: Yes (Hospitalization)
  Sender: FDA-Public Use
  Company Number: US-JNJFOC-20140217832

PATIENT
  Age: 25 Year
  Sex: Male
  Weight: 113.4 kg

DRUGS (1)
  1. RISPERDAL [Suspect]
     Indication: SCHIZOAFFECTIVE DISORDER
     Route: 048
     Dates: start: 201311

REACTIONS (2)
  - Paranoia [Unknown]
  - Self-injurious ideation [Recovered/Resolved]
